FAERS Safety Report 19101831 (Version 1)
Quarter: 2021Q2

REPORT INFORMATION
  Report Type: Spontaneous
  Country: US (occurrence: US)
  Receive Date: 20210407
  Receipt Date: 20210407
  Transmission Date: 20210717
  Serious: Yes (Hospitalization)
  Sender: FDA-Public Use
  Company Number: None

PATIENT
  Age: 60 Year
  Sex: Female

DRUGS (2)
  1. ENOXAPARIN 40MG SYRINGES [Suspect]
     Active Substance: ENOXAPARIN
  2. ENOXAPARIN 40 MG [Concomitant]
     Active Substance: ENOXAPARIN

REACTIONS (2)
  - Suspected product quality issue [None]
  - Gastrointestinal haemorrhage [None]

NARRATIVE: CASE EVENT DATE: 20210331
